FAERS Safety Report 6569896-1 (Version None)
Quarter: 2010Q1

REPORT INFORMATION
  Report Type: 
  Country: None (occurrence: None)
  Receive Date: 20100204
  Receipt Date: 20100201
  Transmission Date: 20100710
  Serious: Yes (Death, Other)
  Sender: FDA-Public Use
  Company Number: PHHY2010SE05179

PATIENT
  Sex: Male

DRUGS (2)
  1. ZOMETA [Suspect]
     Indication: HYPERCALCAEMIA
     Dosage: UNK
     Dates: start: 20091113
  2. FRAGMIN [Concomitant]

REACTIONS (7)
  - BLADDER NEOPLASM [None]
  - BLOOD CREATININE INCREASED [None]
  - DEATH [None]
  - DEHYDRATION [None]
  - INFECTION [None]
  - OLIGURIA [None]
  - RENAL FAILURE ACUTE [None]
